FAERS Safety Report 4830064-2 (Version None)
Quarter: 2005Q4

REPORT INFORMATION
  Report Type: 
  Country: None (occurrence: None)
  Receive Date: 20051115
  Receipt Date: 20051115
  Transmission Date: 20060501
  Serious: Yes (Death)
  Sender: FDA-Public Use
  Company Number: None

PATIENT
  Sex: Female
  Weight: 71.2147 kg

DRUGS (6)
  1. CARBOPLATIN [Suspect]
     Indication: OVARIAN CANCER
     Dosage: 330 MG Q3 WEEKS IV
     Route: 042
     Dates: start: 20050628
  2. ONXAL [Concomitant]
  3. DEXAMETHASONE [Concomitant]
  4. BENADRYL [Concomitant]
  5. TAGAMET [Concomitant]
  6. ALOXI [Concomitant]

REACTIONS (7)
  - ERYTHEMA [None]
  - FEELING HOT [None]
  - GAZE PALSY [None]
  - HEART RATE IRREGULAR [None]
  - INFUSION RELATED REACTION [None]
  - PULSE ABSENT [None]
  - RESPIRATORY DEPRESSION [None]
